FAERS Safety Report 4407545-9 (Version None)
Quarter: 2004Q3

REPORT INFORMATION
  Report Type: 
  Country: None (occurrence: None)
  Receive Date: 20040721
  Receipt Date: 20040709
  Transmission Date: 20050211
  Serious: Yes (Other)
  Sender: FDA-Public Use
  Company Number: HQWYE252620JUL04

PATIENT
  Sex: Female

DRUGS (1)
  1. PREMIA CONTINUOUS [Suspect]
     Indication: HOT FLUSH
     Dosage: ONE TABLET DAILY 0.625MG/5MG ORAL
     Route: 048
     Dates: start: 20000101

REACTIONS (6)
  - AMNESIA [None]
  - HEADACHE [None]
  - JAUNDICE [None]
  - LOSS OF EMPLOYMENT [None]
  - SENSATION OF PRESSURE IN EAR [None]
  - TINNITUS [None]
